FAERS Safety Report 17273716 (Version 1)
Quarter: 2020Q1

REPORT INFORMATION
  Report Type: Report from Study
  Country: CA (occurrence: CA)
  Receive Date: 20200115
  Receipt Date: 20200115
  Transmission Date: 20200409
  Serious: Yes (Other)
  Sender: FDA-Public Use
  Company Number: CA-PFIZER INC-2020011021

PATIENT
  Age: 41 Year
  Sex: Female

DRUGS (7)
  1. HYDROMORPHONE HYDROCHLORIDE. [Suspect]
     Active Substance: HYDROMORPHONE HYDROCHLORIDE
  2. HUMIRA [Concomitant]
     Active Substance: ADALIMUMAB
  3. TYLENOL ARTHRITIS PAIN [Concomitant]
     Active Substance: ACETAMINOPHEN
  4. COSENTYX [Suspect]
     Active Substance: SECUKINUMAB
     Indication: ANKYLOSING SPONDYLITIS
     Dosage: 150 MG, MONTHLY
     Route: 058
  5. METHOTREXATE SODIUM. [Suspect]
     Active Substance: METHOTREXATE SODIUM
  6. ENBREL [Concomitant]
     Active Substance: ETANERCEPT
  7. INDOMETHACIN [INDOMETACIN] [Suspect]
     Active Substance: INDOMETHACIN

REACTIONS (3)
  - Bronchitis [Unknown]
  - Effusion [Unknown]
  - Kidney infection [Unknown]
